FAERS Safety Report 17864366 (Version 6)
Quarter: 2020Q4

REPORT INFORMATION
  Report Type: Report from Study
  Country: CO (occurrence: CO)
  Receive Date: 20200605
  Receipt Date: 20201014
  Transmission Date: 20210113
  Serious: Yes (Death, Life-Threatening, Hospitalization, Other)
  Sender: FDA-Public Use
  Company Number: CO-BRISTOL-MYERS SQUIBB COMPANY-BMS-2019-111766

PATIENT
  Age: 79 Year
  Sex: Male
  Weight: 50 kg

DRUGS (1)
  1. NIVOLUMAB [Suspect]
     Active Substance: NIVOLUMAB
     Indication: HEAD AND NECK CANCER
     Dosage: 120 MILLIGRAM, Q2WK
     Route: 042
     Dates: start: 20191204

REACTIONS (6)
  - Haemorrhage [Recovering/Resolving]
  - Neurosyphilis [Recovering/Resolving]
  - Optic neuritis [Recovering/Resolving]
  - Prescribed underdose [Recovered/Resolved]
  - Immunosuppression [Recovering/Resolving]
  - Respiratory failure [Fatal]

NARRATIVE: CASE EVENT DATE: 20191204
